FAERS Safety Report 8515733-5 (Version None)
Quarter: 2012Q3

REPORT INFORMATION
  Report Type: 
  Country: None (occurrence: None)
  Receive Date: 20120717
  Receipt Date: 20120713
  Transmission Date: 20120928
  Serious: Yes (Other)
  Sender: FDA-Public Use
  Company Number: PHEH2008US04924

PATIENT
  Sex: Female

DRUGS (4)
  1. ZOMETA [Suspect]
  2. AREDIA [Suspect]
  3. EPOGEN [Concomitant]
  4. PEGFILGRASTIM [Concomitant]

REACTIONS (13)
  - ANXIETY [None]
  - DECREASED INTEREST [None]
  - INJURY [None]
  - OSTEONECROSIS OF JAW [None]
  - PAIN [None]
  - METASTASES TO BONE [None]
  - DISABILITY [None]
  - BREAST CANCER [None]
  - GENERAL PHYSICAL HEALTH DETERIORATION [None]
  - METASTASES TO LIVER [None]
  - ECONOMIC PROBLEM [None]
  - MEDICAL OBSERVATION [None]
  - BACK PAIN [None]
